FAERS Safety Report 21713623 (Version 1)
Quarter: 2022Q4

REPORT INFORMATION
  Report Type: Spontaneous
  Country: US (occurrence: US)
  Receive Date: 20221212
  Receipt Date: 20221212
  Transmission Date: 20230113
  Serious: No
  Sender: FDA-Public Use
  Company Number: US-AMERICAN REGENT INC-2022001806

PATIENT
  Age: 40 Year
  Sex: Female
  Weight: 57.8 kg

DRUGS (19)
  1. VENOFER [Suspect]
     Active Substance: IRON SUCROSE
     Indication: Iron deficiency anaemia
     Dosage: 300 MILLIGRAM IN NSS 250 ML
     Route: 042
     Dates: start: 20200520, end: 20200520
  2. VENOFER [Suspect]
     Active Substance: IRON SUCROSE
     Dosage: 300 MILLIGRAM IN NSS 250 ML
     Route: 042
     Dates: start: 20200529, end: 20200529
  3. VENOFER [Suspect]
     Active Substance: IRON SUCROSE
     Dosage: 300 MILLIGRAM IN NSS 250 ML
     Route: 042
     Dates: start: 20200604, end: 20200604
  4. VENOFER [Suspect]
     Active Substance: IRON SUCROSE
     Dosage: 300 MILLIGRAM IN NSS 250 ML
     Route: 042
     Dates: start: 20200612, end: 20200612
  5. XANAX [Concomitant]
     Active Substance: ALPRAZOLAM
     Indication: Insomnia
     Dosage: TAKE 1 TAB 2 TIMES A DAY AS NEEDED
     Route: 048
     Dates: start: 20200501
  6. XANAX [Concomitant]
     Active Substance: ALPRAZOLAM
     Indication: Anxiety
  7. XANAX [Concomitant]
     Active Substance: ALPRAZOLAM
     Indication: Adjustment disorder with mixed anxiety and depressed mood
  8. DESYREL [Concomitant]
     Active Substance: TRAZODONE HYDROCHLORIDE
     Indication: Adjustment disorder with mixed anxiety and depressed mood
     Dosage: TAKE 1 TABLET EVERYDAY AT BEDTIME
     Route: 048
     Dates: start: 20200414
  9. DESYREL [Concomitant]
     Active Substance: TRAZODONE HYDROCHLORIDE
     Indication: Insomnia
  10. DELTASONE [Concomitant]
     Active Substance: PREDNISONE
     Indication: Product used for unknown indication
     Dosage: TAKE 5 TABS FOR 2 DAYS, 4 TABS FOR 2 DAYS, 3 TABS FOR 2 DAYS, 2 TABS FOR 2 DAYS, 1 TAB FOR 2 DAYS
     Route: 048
     Dates: start: 20200316
  11. FLONASE [Concomitant]
     Active Substance: FLUTICASONE PROPIONATE
     Indication: Acute sinusitis
     Dosage: SPRAY 2 SPRAYS INTO EACH NOSTRIL EVERY DAY
     Route: 045
     Dates: start: 20200211
  12. ALBUTEROL SULFATE [Concomitant]
     Active Substance: ALBUTEROL SULFATE
     Indication: Product used for unknown indication
     Dosage: INHALE 2 PUFFS BY MOUTH 4 TIMES A DAY AS NEEDED
  13. AUVI-Q [Concomitant]
     Active Substance: EPINEPHRINE
     Indication: Product used for unknown indication
     Dosage: INJECT AS DIRECTED
  14. ALLEGRA ALLERGY [Concomitant]
     Active Substance: FEXOFENADINE HYDROCHLORIDE
     Indication: Product used for unknown indication
     Dosage: TAKE 60 MG DAILY
     Route: 048
  15. BREO ELLIPTA [Concomitant]
     Active Substance: FLUTICASONE FUROATE\VILANTEROL TRIFENATATE
     Indication: Product used for unknown indication
     Dosage: INHALE 1 PUFF BY MOUTH
  16. PROZAC [Concomitant]
     Active Substance: FLUOXETINE HYDROCHLORIDE
     Indication: Adjustment disorder with mixed anxiety and depressed mood
     Dosage: TAKE 1 CAPSULE EVERYDAY
     Route: 048
     Dates: start: 20190929
  17. HYDROXYZINE HYDROCHLORIDE [Concomitant]
     Active Substance: HYDROXYZINE HYDROCHLORIDE
     Indication: Pruritus
     Dosage: TAKE 1 TAB AT BEDTIME AS NEEDED
     Route: 048
     Dates: start: 20190109
  18. VITAMIN C [Concomitant]
     Active Substance: ASCORBIC ACID
     Indication: Iron deficiency anaemia
     Dosage: TAKE 1 TAB 3 TIMES A DAY. WITH IRON
     Route: 048
     Dates: start: 20190906
  19. ANTIVERT [Concomitant]
     Active Substance: MECLIZINE HYDROCHLORIDE
     Indication: Dizziness
     Dosage: TAKE 1 TAB 3 TIMES A DAY AS NEEDED
     Route: 048
     Dates: start: 20181109

REACTIONS (4)
  - Migraine [Unknown]
  - Infusion site pruritus [Unknown]
  - Infusion site pain [Unknown]
  - Off label use [Recovered/Resolved]

NARRATIVE: CASE EVENT DATE: 20200501
